FAERS Safety Report 15363471 (Version 5)
Quarter: 2019Q2

REPORT INFORMATION
  Report Type: Report from Study
  Country: US (occurrence: US)
  Receive Date: 20180907
  Receipt Date: 20190606
  Transmission Date: 20190711
  Serious: No
  Sender: FDA-Public Use
  Company Number: PHEH2018US037423

PATIENT
  Sex: Female

DRUGS (1)
  1. COSENTYX [Suspect]
     Active Substance: SECUKINUMAB
     Indication: PSORIASIS
     Dosage: 300 MG, QMO
     Route: 058
     Dates: start: 20180515

REACTIONS (5)
  - Temperature intolerance [Unknown]
  - Psoriasis [Unknown]
  - Cognitive disorder [Unknown]
  - Pruritus [Unknown]
  - Therapeutic product effect decreased [Unknown]
